FAERS Safety Report 5871636-6 (Version None)
Quarter: 2008Q3

REPORT INFORMATION
  Report Type: 
  Country: None (occurrence: None)
  Receive Date: 20080904
  Receipt Date: 20080904
  Transmission Date: 20090109
  Serious: No
  Sender: FDA-Public Use
  Company Number: None

PATIENT
  Age: 47 Year
  Sex: Male

DRUGS (2)
  1. AMIODARONE HCL [Suspect]
  2. PIOGLITAZONE [Suspect]

REACTIONS (2)
  - LIVER DISORDER [None]
  - RENAL DISORDER [None]
